FAERS Safety Report 7046756-3 (Version None)
Quarter: 2010Q4

REPORT INFORMATION
  Report Type: 
  Country: None (occurrence: None)
  Receive Date: 20101015
  Receipt Date: 20101005
  Transmission Date: 20110411
  Serious: Yes (Life-Threatening, Hospitalization)
  Sender: FDA-Public Use
  Company Number: NO-JNJFOC-20090807700

PATIENT
  Sex: Male

DRUGS (3)
  1. REMICADE [Suspect]
     Indication: ANKYLOSING SPONDYLITIS
     Dosage: 300 MG OVER A TOTAL OF 3 INFUSIONS
     Route: 042
     Dates: start: 20071220, end: 20080416
  2. ENBREL [Suspect]
     Indication: ANKYLOSING SPONDYLITIS
     Route: 058
  3. HUMIRA [Concomitant]
     Indication: ANKYLOSING SPONDYLITIS
     Route: 058

REACTIONS (1)
  - ACUTE MYELOID LEUKAEMIA [None]
